FAERS Safety Report 8557465-3 (Version None)
Quarter: 2012Q2

REPORT INFORMATION
  Report Type: 
  Country: None (occurrence: None)
  Receive Date: 20120418
  Receipt Date: 20090323
  Transmission Date: 20120825
  Serious: Yes (Other)
  Sender: FDA-Public Use
  Company Number: PHEH2009US02928

PATIENT
  Sex: Female

DRUGS (5)
  1. DIOVAN HCT [Suspect]
     Dosage: 320MG/25MG
     Dates: start: 20010101
  2. FUROSEMIDE [Concomitant]
  3. CLONIDINE [Concomitant]
  4. POTASSIUM (POTASSIUM) [Concomitant]
  5. INSULIN (INSULIN) [Concomitant]

REACTIONS (1)
  - RENAL FAILURE CHRONIC [None]
